FAERS Safety Report 5714951-9 (Version None)
Quarter: 2008Q2

REPORT INFORMATION
  Report Type: 
  Country: None (occurrence: None)
  Receive Date: 20080423
  Receipt Date: 20080416
  Transmission Date: 20081010
  Serious: Yes (Other)
  Sender: FDA-Public Use
  Company Number: GB-ROCHE-559086

PATIENT
  Sex: Female
  Weight: 76 kg

DRUGS (4)
  1. ORLISTAT [Suspect]
     Indication: OBESITY
     Route: 048
     Dates: start: 20080319
  2. ORLISTAT [Suspect]
     Route: 048
     Dates: start: 20080118
  3. UNKNOWN MEDICATION FOR PAIN [Concomitant]
     Indication: ANALGESIC THERAPY
     Route: 048
  4. 1 CONCOMITANT DRUG [Concomitant]
     Indication: DEPRESSION
     Dosage: ENTERED AS ANTI-DEPRESSANT TABLETS - BRAND UNKNOWN
     Route: 048

REACTIONS (1)
  - HYSTERECTOMY [None]
